FAERS Safety Report 23215599 (Version 1)
Quarter: 2023Q4

REPORT INFORMATION
  Report Type: Spontaneous
  Country: US (occurrence: US)
  Receive Date: 20231122
  Receipt Date: 20231122
  Transmission Date: 20240110
  Serious: No
  Sender: FDA-Public Use
  Company Number: US-ALMIRALL, LLC-2023AQU000047

PATIENT

DRUGS (3)
  1. SEYSARA [Suspect]
     Active Substance: SARECYCLINE HYDROCHLORIDE
     Indication: Acne cystic
     Dosage: UNK
     Route: 065
     Dates: start: 2023, end: 202304
  2. SEYSARA [Suspect]
     Active Substance: SARECYCLINE HYDROCHLORIDE
     Dosage: UNK
     Route: 065
     Dates: start: 20230731
  3. WINLEVI [Concomitant]
     Active Substance: CLASCOTERONE
     Indication: Acne cystic
     Dosage: UNK

REACTIONS (1)
  - Therapeutic product effect incomplete [Unknown]
